FAERS Safety Report 5489181-9 (Version None)
Quarter: 2007Q4

REPORT INFORMATION
  Report Type: 
  Country: None (occurrence: None)
  Receive Date: 20071018
  Receipt Date: 20070216
  Transmission Date: 20080405
  Serious: Yes (Other)
  Sender: FDA-Public Use
  Company Number: US-BRISTOL-MYERS SQUIBB COMPANY-13682828

PATIENT
  Age: 31 Year
  Sex: Female
  Weight: 57 kg

DRUGS (1)
  1. MEGACE [Suspect]
     Route: 048
     Dates: start: 20000101

REACTIONS (1)
  - THROMBOSIS [None]
